FAERS Safety Report 13125941 (Version 8)
Quarter: 2017Q3

REPORT INFORMATION
  Report Type: Spontaneous
  Country: KR (occurrence: KR)
  Receive Date: 20170118
  Receipt Date: 20170823
  Transmission Date: 20171127
  Serious: Yes (Other)
  Sender: FDA-Public Use
  Company Number: KR-009507513-1701KOR006862

PATIENT
  Age: 45 Year
  Sex: Male
  Weight: 72.5 kg

DRUGS (55)
  1. DEXAMETHASONE SODIUM PHOSPHATE. [Concomitant]
     Active Substance: DEXAMETHASONE SODIUM PHOSPHATE
     Indication: PROPHYLAXIS OF NAUSEA AND VOMITING
     Dosage: 10 MG, ONCE
     Route: 042
     Dates: start: 20160428, end: 20160429
  2. DEXAMETHASONE. [Concomitant]
     Active Substance: DEXAMETHASONE
     Dosage: 3.75 MG, BID
     Route: 048
     Dates: start: 20160525, end: 20160525
  3. OMP [Concomitant]
     Active Substance: OMEPRAZOLE
     Indication: PROPHYLAXIS
     Dosage: 20 MG, (1 TABLET)
     Route: 048
     Dates: start: 20160429
  4. LASIX [Concomitant]
     Active Substance: FUROSEMIDE
     Indication: PROPHYLAXIS
     Dosage: 20 MG, ONCE STRENGTH: 20MG/2ML
     Route: 042
     Dates: start: 20160428, end: 20160428
  5. MANNITOL. [Concomitant]
     Active Substance: MANNITOL
     Dosage: 100 ML, ONCE
     Route: 042
     Dates: start: 20161121, end: 20161121
  6. EMEND (FOSAPREPITANT DIMEGLUMINE) [Suspect]
     Active Substance: FOSAPREPITANT DIMEGLUMINE
     Dosage: 150 MG, ONCE
     Route: 042
     Dates: start: 20161010, end: 20161010
  7. CISPLATIN. [Concomitant]
     Active Substance: CISPLATIN
     Dosage: 107.4 MG, ONCE CYCLE 3
     Route: 042
     Dates: start: 20161010, end: 20161010
  8. DEXAMETHASONE. [Concomitant]
     Active Substance: DEXAMETHASONE
     Dosage: 3.75 MG, BID
     Route: 048
     Dates: start: 20161010, end: 20161012
  9. ULCERLMIN [Concomitant]
     Active Substance: SUCRALFATE
     Dosage: 15 ML, QID
     Route: 048
     Dates: start: 20160604, end: 20160607
  10. CISPLATIN. [Concomitant]
     Active Substance: CISPLATIN
     Dosage: 107.4 MG, ONCE CYCLE 4
     Route: 042
     Dates: start: 20161031, end: 20161031
  11. DEXAMETHASONE SODIUM PHOSPHATE. [Concomitant]
     Active Substance: DEXAMETHASONE SODIUM PHOSPHATE
     Dosage: 5 MG, ONCE
     Route: 042
     Dates: start: 20161128, end: 20161128
  12. BESZYME [Concomitant]
     Indication: PROPHYLAXIS
     Dosage: 1 DF, TID
     Route: 048
     Dates: start: 20160504
  13. LASIX [Concomitant]
     Active Substance: FUROSEMIDE
     Dosage: 20 MG, ONCE
     Route: 042
     Dates: start: 20161031, end: 20161031
  14. MANNITOL. [Concomitant]
     Active Substance: MANNITOL
     Dosage: 100 ML, ONCE
     Route: 042
     Dates: start: 20161031, end: 20161031
  15. MANNITOL. [Concomitant]
     Active Substance: MANNITOL
     Dosage: 100 ML, ONCE
     Route: 042
     Dates: start: 20161212, end: 20161212
  16. EMEND (FOSAPREPITANT DIMEGLUMINE) [Suspect]
     Active Substance: FOSAPREPITANT DIMEGLUMINE
     Dosage: 150 MG, ONCE
     Route: 042
     Dates: start: 20161031, end: 20161031
  17. EMEND (FOSAPREPITANT DIMEGLUMINE) [Suspect]
     Active Substance: FOSAPREPITANT DIMEGLUMINE
     Dosage: 150 MG, ONCE
     Route: 042
     Dates: start: 20161212, end: 20161212
  18. FLUOROURACIL. [Concomitant]
     Active Substance: FLUOROURACIL
     Dosage: 1800 MG, ONCE CYCLE 2
     Route: 042
     Dates: start: 20160524, end: 20160527
  19. DEXAMETHASONE SODIUM PHOSPHATE. [Concomitant]
     Active Substance: DEXAMETHASONE SODIUM PHOSPHATE
     Dosage: 2.5 MG, ONCE
     Route: 042
     Dates: start: 20161219, end: 20161219
  20. DEXAMETHASONE. [Concomitant]
     Active Substance: DEXAMETHASONE
     Dosage: 1.5 MG, BID
     Route: 048
     Dates: start: 20161031, end: 20161102
  21. DEXAMETHASONE. [Concomitant]
     Active Substance: DEXAMETHASONE
     Dosage: 1.5 MG, BID
     Route: 048
     Dates: start: 20161121, end: 20161123
  22. DEXAMETHASONE. [Concomitant]
     Active Substance: DEXAMETHASONE
     Dosage: 1.5 MG, BID
     Route: 048
     Dates: start: 20161212, end: 20161214
  23. SODIUM ALGINATE [Concomitant]
     Active Substance: SODIUM ALGINATE
     Indication: PROPHYLAXIS
     Dosage: 20 ML, TID
     Route: 048
     Dates: start: 20160427
  24. EMEND (FOSAPREPITANT DIMEGLUMINE) [Suspect]
     Active Substance: FOSAPREPITANT DIMEGLUMINE
     Dosage: 150 MG, ONCE
     Route: 042
     Dates: start: 20161121, end: 20161121
  25. DEXAMETHASONE SODIUM PHOSPHATE. [Concomitant]
     Active Substance: DEXAMETHASONE SODIUM PHOSPHATE
     Dosage: 10 MG, ONCE
     Route: 042
     Dates: start: 20160524, end: 20160524
  26. DEXAMETHASONE. [Concomitant]
     Active Substance: DEXAMETHASONE
     Indication: PROPHYLAXIS OF NAUSEA AND VOMITING
     Dosage: 3.75 MG, BID
     Route: 048
     Dates: start: 20160429, end: 20160501
  27. ALOXI [Concomitant]
     Active Substance: PALONOSETRON HYDROCHLORIDE
     Indication: PROPHYLAXIS OF NAUSEA AND VOMITING
     Dosage: 0.25 MG, ONCE
     Route: 042
     Dates: start: 20160428, end: 20160428
  28. LASIX [Concomitant]
     Active Substance: FUROSEMIDE
     Dosage: 20 MG, ONCE
     Route: 042
     Dates: start: 20161212, end: 20161212
  29. MANNITOL. [Concomitant]
     Active Substance: MANNITOL
     Indication: PROPHYLAXIS
     Dosage: 100 ML, ONCE STRENGTH: 15%100ML
     Route: 042
     Dates: start: 20160428, end: 20160428
  30. MANNITOL. [Concomitant]
     Active Substance: MANNITOL
     Dosage: 100 ML, ONCE
     Route: 042
     Dates: start: 20161010, end: 20161010
  31. K-CONTIN [Concomitant]
     Dosage: 600MG (1 TABLET), ONCE
     Route: 048
     Dates: start: 20160527, end: 20160527
  32. EMEND (FOSAPREPITANT DIMEGLUMINE) [Suspect]
     Active Substance: FOSAPREPITANT DIMEGLUMINE
     Dosage: 150 MG, ONCE
     Route: 042
     Dates: start: 20160524, end: 20160524
  33. ALOXI [Concomitant]
     Active Substance: PALONOSETRON HYDROCHLORIDE
     Dosage: 0.25 MG, ONCE
     Route: 042
     Dates: start: 20160524, end: 20160524
  34. XANAX [Concomitant]
     Active Substance: ALPRAZOLAM
     Indication: PROPHYLAXIS
     Dosage: 0.5 DF, BID
     Route: 048
     Dates: start: 20160427
  35. SODIUM ALGINATE [Concomitant]
     Active Substance: SODIUM ALGINATE
     Dosage: 20 ML, BID
     Route: 048
     Dates: start: 20160427
  36. OMED [Concomitant]
     Indication: PROPHYLAXIS
     Dosage: 10MG (1 TABLET)
     Route: 048
     Dates: start: 20160427, end: 20160428
  37. MECKOOL [Concomitant]
     Indication: PROPHYLAXIS OF NAUSEA AND VOMITING
     Dosage: 10 MG, ONCE. STRENGTH: 4.231MG/ML
     Route: 042
     Dates: start: 20160430, end: 20160430
  38. LASIX [Concomitant]
     Active Substance: FUROSEMIDE
     Dosage: 20 MG, ONCE
     Route: 042
     Dates: start: 20160524, end: 20160524
  39. LASIX [Concomitant]
     Active Substance: FUROSEMIDE
     Dosage: 20 MG, ONCE
     Route: 042
     Dates: start: 20161010, end: 20161010
  40. EMEND (FOSAPREPITANT DIMEGLUMINE) [Suspect]
     Active Substance: FOSAPREPITANT DIMEGLUMINE
     Indication: PROPHYLAXIS OF NAUSEA AND VOMITING
     Dosage: 150 MG, ONCE
     Route: 042
     Dates: start: 20160428, end: 20160428
  41. CISPLATIN. [Concomitant]
     Active Substance: CISPLATIN
     Indication: OESOPHAGEAL CARCINOMA
     Dosage: 115.8 MG, ONCE CYCLE 1
     Route: 042
     Dates: start: 20160428, end: 20160428
  42. CISPLATIN. [Concomitant]
     Active Substance: CISPLATIN
     Dosage: 106.2 MG, ONCE CYCLE 5
     Route: 042
     Dates: start: 20161121, end: 20161121
  43. CHLORPHENIRAMINE MALEATE (+) DIHYDROCODEINE BITARTRATE (+) GUAIFENESIN [Concomitant]
     Indication: PROPHYLAXIS
     Dosage: 2 DF, TID
     Route: 048
     Dates: start: 20160428
  44. MECKOOL [Concomitant]
     Indication: NAUSEA
  45. ULCERLMIN [Concomitant]
     Active Substance: SUCRALFATE
     Indication: PROPHYLAXIS
     Dosage: 15 ML, TID STRENGTH: 1G/15ML
     Route: 048
     Dates: start: 20160518, end: 20160524
  46. K-CONTIN [Concomitant]
     Dosage: 1200MG (2 TABLETS), TID
     Route: 048
     Dates: start: 20160606, end: 20160606
  47. CISPLATIN. [Concomitant]
     Active Substance: CISPLATIN
     Dosage: 108 MG, ONCE CYCLE 2
     Route: 042
     Dates: start: 20160524, end: 20160524
  48. CISPLATIN. [Concomitant]
     Active Substance: CISPLATIN
     Dosage: 122.5 MG, ONCE CYCLE 6
     Route: 042
     Dates: start: 20161212, end: 20161212
  49. FLUOROURACIL. [Concomitant]
     Active Substance: FLUOROURACIL
     Indication: OESOPHAGEAL CARCINOMA
     Dosage: 1930 MG, QD CYCLE 1
     Route: 042
     Dates: start: 20160428, end: 20160430
  50. DEXAMETHASONE SODIUM PHOSPHATE. [Concomitant]
     Active Substance: DEXAMETHASONE SODIUM PHOSPHATE
     Dosage: 10 MG, ONCE
     Route: 042
     Dates: start: 20161010, end: 20161010
  51. GASMOTIN [Concomitant]
     Active Substance: MOSAPRIDE CITRATE
     Indication: PROPHYLAXIS
     Dosage: 5MG (1 TABLET)
     Route: 048
     Dates: start: 20160427
  52. LASIX [Concomitant]
     Active Substance: FUROSEMIDE
     Dosage: 20 MG, ONCE
     Route: 042
     Dates: start: 20161121, end: 20161121
  53. MANNITOL. [Concomitant]
     Active Substance: MANNITOL
     Dosage: 100 ML, ONCE
     Route: 042
     Dates: start: 20160524, end: 20160524
  54. K-CONTIN [Concomitant]
     Indication: PROPHYLAXIS
     Dosage: QD 1200MG (2 TABLETS)
     Route: 048
     Dates: start: 20160526, end: 20160526
  55. YUHAN COUGH TABLETS [Concomitant]
     Indication: PROPHYLAXIS
     Dosage: 2 TABLETS, TID
     Route: 048
     Dates: start: 20160428

REACTIONS (10)
  - Arrhythmia [Recovering/Resolving]
  - Nausea [Recovered/Resolved]
  - Decreased appetite [Recovered/Resolved]
  - Hypokalaemia [Recovered/Resolved]
  - Asthenia [Recovered/Resolved]
  - Pyrexia [Recovered/Resolved]
  - Drug ineffective [Unknown]
  - Abdominal pain upper [Recovered/Resolved]
  - Cough [Recovered/Resolved]
  - Palpitations [Recovered/Resolved]

NARRATIVE: CASE EVENT DATE: 20160518
